FAERS Safety Report 18609102 (Version 11)
Quarter: 2022Q1

REPORT INFORMATION
  Report Type: Report from Study
  Country: US (occurrence: None)
  Receive Date: 20201214
  Receipt Date: 20220114
  Transmission Date: 20220423
  Serious: Yes (Hospitalization)
  Sender: FDA-Public Use
  Company Number: US-ROCHE-2726953

PATIENT
  Age: 31 Year
  Sex: Male
  Weight: 108.9 kg

DRUGS (18)
  1. SATRALIZUMAB [Suspect]
     Active Substance: SATRALIZUMAB
     Indication: Neuromyelitis optica spectrum disorder
     Dosage: ON 24/AUG/2020, HE RECEIVED LAST DOSE OF SATRALIZUMAB PRIOR TO AE ONSET.?ON 14/DEC/2020, HE RECEIVED
     Route: 058
     Dates: start: 20150930
  2. SATRALIZUMAB [Suspect]
     Active Substance: SATRALIZUMAB
     Indication: Neuromyelitis optica spectrum disorder
  3. SATRALIZUMAB [Suspect]
     Active Substance: SATRALIZUMAB
     Indication: Neuromyelitis optica spectrum disorder
     Dosage: ON 24/AUG/2020, HE RECEIVED LAST DOSE OF SATRALIZUMAB PRIOR TO AE ONSET?ON 14/DEC/2020, HE RECEIVED
     Route: 058
     Dates: start: 20150930
  4. VITAMIN B12 [Concomitant]
     Active Substance: CYANOCOBALAMIN
     Dates: start: 20200111
  5. MOVANTIK [Concomitant]
     Active Substance: NALOXEGOL OXALATE
     Dates: start: 20170803
  6. MACROBID [Concomitant]
     Active Substance: NITROFURANTOIN\NITROFURANTOIN MONOHYDRATE
     Dates: start: 20151114
  7. NEURONTIN [Concomitant]
     Active Substance: GABAPENTIN
     Dates: start: 2013
  8. TOFRANIL [Concomitant]
     Active Substance: IMIPRAMINE HYDROCHLORIDE
     Dates: start: 201308
  9. LOPRESSOR [Concomitant]
     Active Substance: METOPROLOL TARTRATE
     Dates: start: 201308
  10. ACETAMINOPHEN [Concomitant]
     Active Substance: ACETAMINOPHEN
     Dates: start: 20200908, end: 20200908
  11. ACETAMINOPHEN [Concomitant]
     Active Substance: ACETAMINOPHEN
     Dates: start: 20200906, end: 20200906
  12. HEPARIN [Concomitant]
     Active Substance: HEPARIN SODIUM
     Dates: start: 20200907, end: 20200910
  13. ACETAMINOPHEN\HYDROCODONE [Concomitant]
     Active Substance: ACETAMINOPHEN\HYDROCODONE
     Dosage: DOSE:20/650 MG
     Dates: start: 20200908, end: 20200909
  14. MORPHINE [Concomitant]
     Active Substance: MORPHINE
     Dates: start: 20200908, end: 20200908
  15. NICOTINE [Concomitant]
     Active Substance: NICOTINE
     Route: 062
     Dates: start: 20200908, end: 20200910
  16. OMEPRAZOLE [Concomitant]
     Active Substance: OMEPRAZOLE
     Dates: start: 20200908, end: 20200910
  17. OXYBUTYNIN [Concomitant]
     Active Substance: OXYBUTYNIN
     Dates: start: 20200909, end: 20200910
  18. VESICARE [Concomitant]
     Active Substance: SOLIFENACIN SUCCINATE
     Dates: start: 201402

REACTIONS (1)
  - Cellulitis [Recovered/Resolved]

NARRATIVE: CASE EVENT DATE: 20200903
